FAERS Safety Report 17183952 (Version 1)
Quarter: 2019Q4

REPORT INFORMATION
  Report Type: Spontaneous
  Country: US (occurrence: US)
  Receive Date: 20191220
  Receipt Date: 20191220
  Transmission Date: 20200122
  Serious: No
  Sender: FDA-Public Use
  Company Number: US-RECKITT BENCKISER HEALTHCARE INT LIMITED-RB-81566-2019

PATIENT
  Sex: Female

DRUGS (3)
  1. DELSYM [Suspect]
     Active Substance: DEXTROMETHORPHAN
     Indication: COUGH
  2. DELSYM [Suspect]
     Active Substance: DEXTROMETHORPHAN
     Indication: PYREXIA
     Dosage: UNK
     Route: 065
     Dates: start: 2019
  3. DELSYM [Suspect]
     Active Substance: DEXTROMETHORPHAN
     Indication: RHINORRHOEA

REACTIONS (1)
  - Drug ineffective [Not Recovered/Not Resolved]
